FAERS Safety Report 24137404 (Version 1)
Quarter: 2024Q3

REPORT INFORMATION
  Report Type: Spontaneous
  Country: GB (occurrence: GB)
  Receive Date: 20240725
  Receipt Date: 20240725
  Transmission Date: 20241017
  Serious: Yes (Hospitalization, Other)
  Sender: PFIZER
  Company Number: GB-MHRA-MIDB: e47b8a61-f45b-4bd2-b5f5-0901d54963e0

PATIENT
  Age: 96 Year
  Sex: Female

DRUGS (5)
  1. EXEMESTANE [Suspect]
     Active Substance: EXEMESTANE
     Dosage: 25 MG, 1X/DAY
  2. OMEPRAZOLE [Concomitant]
     Active Substance: OMEPRAZOLE
  3. ATENOLOL [Concomitant]
     Active Substance: ATENOLOL
     Dosage: 100 MG, 1X/DAY
  4. QUININE BISULFATE [Concomitant]
     Active Substance: QUININE BISULFATE
     Dosage: AT NIGHT
  5. WARFARIN [Concomitant]
     Active Substance: WARFARIN
     Indication: Pulmonary embolism
     Dosage: 1 MG TABLETS AS DIRECTED-LAS LAST INR 8/12/23-7.3, TARGET- 2-3,, LONGTERM, DOSE- TAKE 0MG FOR 2/7, T

REACTIONS (1)
  - Femur fracture [Unknown]
